FAERS Safety Report 7510797-X (Version None)
Quarter: 2011Q2

REPORT INFORMATION
  Report Type: 
  Country: None (occurrence: None)
  Receive Date: 20110530
  Receipt Date: 20110518
  Transmission Date: 20111010
  Serious: Yes (Death)
  Sender: FDA-Public Use
  Company Number: GB-BAUSCH-2011BL003333

PATIENT
  Age: 59 Year
  Sex: Female
  Weight: 96 kg

DRUGS (2)
  1. REVLIMID [Suspect]
     Indication: MULTIPLE MYELOMA
     Dosage: DOSE UNIT:UNKNOWN
     Route: 048
  2. DEXAMETHASONE [Suspect]
     Indication: MULTIPLE MYELOMA

REACTIONS (3)
  - MULTIPLE MYELOMA [None]
  - TUMOUR LYSIS SYNDROME [None]
  - RENAL FAILURE ACUTE [None]
